FAERS Safety Report 8873857 (Version 1)
Quarter: 2012Q4

REPORT INFORMATION
  Report Type: 
  Country: US (occurrence: US)
  Receive Date: 20121030
  Receipt Date: 20121030
  Transmission Date: 20130627
  Serious: No
  Sender: FDA-Public Use
  Company Number: US-ABBOTT-12P-163-0926537-00

PATIENT
  Sex: Female

DRUGS (5)
  1. LUPRON DEPOT 3.75 MG [Suspect]
     Indication: MENSTRUAL DISORDER
     Route: 050
  2. LUPRON DEPOT 3.75 MG [Suspect]
     Indication: PLATELET COUNT DECREASED
  3. LUPRON DEPOT 3.75 MG [Suspect]
     Indication: COAGULOPATHY
  4. LUPRON DEPOT 3.75 MG [Suspect]
     Indication: COAGULOPATHY
  5. LUPRON DEPOT 3.75 MG [Suspect]
     Indication: DISSEMINATED INTRAVASCULAR COAGULATION

REACTIONS (2)
  - Incorrect route of drug administration [Not Recovered/Not Resolved]
  - Medication error [Unknown]
